FAERS Safety Report 5295350-3 (Version None)
Quarter: 2007Q2

REPORT INFORMATION
  Report Type: 
  Country: None (occurrence: None)
  Receive Date: 20070412
  Receipt Date: 20070331
  Transmission Date: 20071010
  Serious: Yes (Hospitalization, Other)
  Sender: FDA-Public Use
  Company Number: US-PFIZER INC-2007017461

PATIENT
  Age: 48 Year
  Sex: Female
  Weight: 90.3 kg

DRUGS (6)
  1. LYRICA [Suspect]
     Indication: NEURALGIA
     Dosage: DAILY DOSE:150MG
     Dates: start: 20060501, end: 20061016
  2. LYRICA [Suspect]
     Dates: start: 20060501, end: 20061016
  3. LEVOTHROID [Concomitant]
     Indication: HYPOTHYROIDISM
  4. SKELAXIN [Concomitant]
     Indication: FIBROMYALGIA
     Dates: start: 20040101
  5. GEMFIBROZIL [Concomitant]
  6. NORTRIPTYLINE HCL [Concomitant]
     Indication: NEURALGIA
     Dates: start: 20010101

REACTIONS (2)
  - SPINAL FUSION SURGERY [None]
  - VISION BLURRED [None]
